FAERS Safety Report 9250015 (Version 3)
Quarter: 2014Q2

REPORT INFORMATION
  Report Type: Spontaneous
  Country: US (occurrence: US)
  Receive Date: 20130424
  Receipt Date: 20140425
  Transmission Date: 20141212
  Serious: Yes (Disabling)
  Sender: FDA-Public Use
  Company Number: US-ASTRAZENECA-2013SE27305

PATIENT
  Age: 67 Year
  Sex: Female

DRUGS (22)
  1. NEXIUM [Suspect]
     Indication: GASTROOESOPHAGEAL REFLUX DISEASE
     Route: 048
     Dates: start: 2003
  2. NEXIUM [Suspect]
     Indication: GASTROOESOPHAGEAL REFLUX DISEASE
     Route: 048
     Dates: start: 201208
  3. PRILOSEC [Suspect]
     Indication: GASTROOESOPHAGEAL REFLUX DISEASE
     Route: 048
  4. GAVISON [Concomitant]
     Indication: FLATULENCE
     Dosage: AS NEEDED
  5. MYLANTA [Concomitant]
     Indication: DYSPEPSIA
     Dosage: AS NEEDED
  6. MYLANTA [Concomitant]
     Indication: HYPERCHLORHYDRIA
     Dosage: AS NEEDED
  7. MILK OF MAGNESIA [Concomitant]
     Indication: CONSTIPATION
     Dosage: AS NEEDED
  8. ALKA-SELTZER [Concomitant]
     Indication: NASOPHARYNGITIS
     Dosage: AS NEEDED
  9. ALKA-SELTZER [Concomitant]
     Indication: SINUSITIS
     Dosage: AS NEEDED
  10. ASPIRIN [Concomitant]
     Indication: CARDIAC DISORDER
  11. ALLERGY RELIEF [Concomitant]
     Dosage: PRN
  12. FENOFIBRATE [Concomitant]
     Indication: BLOOD CHOLESTEROL INCREASED
  13. METFORMIN HCL [Concomitant]
     Dates: start: 20040119
  14. GLIPIZIDE [Concomitant]
  15. CLONIDINE HCL [Concomitant]
     Indication: HYPERTENSION
  16. METOPROLOL TARTRATE [Concomitant]
     Indication: HYPERTENSION
     Dosage: 100 MG 1 AND ONE HALF TABS TWICE A DAY
  17. KLOR-CON [Concomitant]
     Indication: HYPERTENSION
  18. GABAPENTIN [Concomitant]
     Indication: NEUROPATHY PERIPHERAL
  19. HYDROCODONE-ACETOAMINOPHEN [Concomitant]
     Indication: PAIN
     Dosage: 10-325 MG TAB ONE EVERY 8 HRS
  20. CHLORDIAZEPOXIDE HCL [Concomitant]
     Indication: ANXIETY
     Dosage: 25 MG TAKE 1-2 CAPS AT BEDTIME
  21. AMLOD/BENAZP [Concomitant]
     Indication: HYPERTENSION
     Dosage: 10-40 MG ONE A DAY
  22. HYDROCHLOROTHIAZIDE [Concomitant]
     Indication: HYPERTENSION

REACTIONS (8)
  - Arthritis [Unknown]
  - Osteoporosis [Unknown]
  - Bone disorder [Unknown]
  - Ulna fracture [Unknown]
  - Upper limb fracture [Unknown]
  - Fall [Unknown]
  - Arthropathy [Unknown]
  - Calcium deficiency [Unknown]
